FAERS Safety Report 17230171 (Version 3)
Quarter: 2020Q2

REPORT INFORMATION
  Report Type: Report from Study
  Country: CA (occurrence: CA)
  Receive Date: 20200103
  Receipt Date: 20200419
  Transmission Date: 20200713
  Serious: Yes (Hospitalization, Other)
  Sender: FDA-Public Use
  Company Number: PHHY2019CA065410

PATIENT
  Age: 48 Year
  Sex: Male

DRUGS (5)
  1. SANDOSTATIN LAR DEPOT [Suspect]
     Active Substance: OCTREOTIDE ACETATE
     Indication: CARCINOID TUMOUR
     Dosage: 30 MG, QMO (EVERY 4 WEEKS)
     Route: 030
     Dates: start: 20170901
  2. ATIVAN [Concomitant]
     Active Substance: LORAZEPAM
     Indication: PRODUCT USED FOR UNKNOWN INDICATION
     Dosage: 1 MG (HS)
     Route: 048
  3. SANDOSTATIN LAR DEPOT [Suspect]
     Active Substance: OCTREOTIDE ACETATE
     Indication: PANCREATIC NEUROENDOCRINE TUMOUR
  4. CETRIZINE [Concomitant]
     Active Substance: CETIRIZINE HYDROCHLORIDE
     Indication: PRODUCT USED FOR UNKNOWN INDICATION
     Route: 065
  5. PERCOCET [Concomitant]
     Active Substance: ACETAMINOPHEN\OXYCODONE HYDROCHLORIDE
     Indication: PRODUCT USED FOR UNKNOWN INDICATION
     Route: 065

REACTIONS (24)
  - Seizure [Recovered/Resolved]
  - Memory impairment [Unknown]
  - Confusional state [Unknown]
  - Muscle spasms [Unknown]
  - Emotional distress [Unknown]
  - Cough [Not Recovered/Not Resolved]
  - Electrolyte imbalance [Recovering/Resolving]
  - Pancreatic neoplasm [Unknown]
  - Blood pressure increased [Unknown]
  - Vomiting [Recovering/Resolving]
  - Pyrexia [Recovering/Resolving]
  - Rhinorrhoea [Not Recovered/Not Resolved]
  - Weight decreased [Unknown]
  - Abdominal pain [Unknown]
  - Asthenia [Recovering/Resolving]
  - Lower respiratory tract congestion [Not Recovered/Not Resolved]
  - Wheezing [Unknown]
  - Paraesthesia [Unknown]
  - Somnolence [Unknown]
  - Clostridium difficile infection [Recovering/Resolving]
  - Muscle rigidity [Unknown]
  - Influenza like illness [Recovering/Resolving]
  - Blood glucose increased [Recovered/Resolved]
  - Hyperglycaemia [Unknown]

NARRATIVE: CASE EVENT DATE: 201903
